FAERS Safety Report 20714151 (Version 1)
Quarter: 2022Q2

REPORT INFORMATION
  Report Type: Spontaneous
  Country: US (occurrence: None)
  Receive Date: 20220415
  Receipt Date: 20220415
  Transmission Date: 20220720
  Serious: Yes (Disabling)
  Sender: FDA-Public Use
  Company Number: None

PATIENT
  Age: 28 Year
  Sex: Female
  Weight: 119.25 kg

DRUGS (14)
  1. HYDROXYCHLOROQUINE [Suspect]
     Active Substance: HYDROXYCHLOROQUINE
     Indication: Systemic lupus erythematosus
     Dosage: OTHER QUANTITY : 1 TABLET(S);?FREQUENCY : DAILY;?
     Route: 048
     Dates: start: 20210326, end: 20220411
  2. SEROQUEL [Concomitant]
     Active Substance: QUETIAPINE FUMARATE
  3. GABAPENTIN [Concomitant]
     Active Substance: GABAPENTIN
  4. FERROUS GLUCONATE [Concomitant]
     Active Substance: FERROUS GLUCONATE
  5. METFORMIN [Concomitant]
     Active Substance: METFORMIN HYDROCHLORIDE
  6. VITAMIN D3 [Concomitant]
     Active Substance: CHOLECALCIFEROL
  7. MAGNESIUM [Concomitant]
     Active Substance: MAGNESIUM
  8. VYLIBRA [Concomitant]
     Active Substance: ETHINYL ESTRADIOL\NORGESTIMATE
  9. IBUPROFEN [Concomitant]
     Active Substance: IBUPROFEN
  10. ACETAMINOPHEN [Concomitant]
     Active Substance: ACETAMINOPHEN
  11. LANSOPRAZOLE [Concomitant]
     Active Substance: LANSOPRAZOLE
  12. CANNABIDIOL\HERBALS [Concomitant]
     Active Substance: CANNABIDIOL\HERBALS
  13. Probiotics (Saccharomyces Boulardi) [Concomitant]
  14. EMERGEN-C [Concomitant]
     Active Substance: VITAMINS

REACTIONS (15)
  - Paraesthesia [None]
  - Sensory disturbance [None]
  - Paraesthesia [None]
  - Pain of skin [None]
  - Electric shock sensation [None]
  - Neuralgia [None]
  - Neuropathic pruritus [None]
  - Pain [None]
  - Systemic lupus erythematosus [None]
  - Autoimmune disorder [None]
  - Fatigue [None]
  - Neuropathy peripheral [None]
  - Anxiety [None]
  - Fear [None]
  - Injury [None]

NARRATIVE: CASE EVENT DATE: 20210702
